FAERS Safety Report 7266936 (Version 7)
Quarter: 2012Q4

REPORT INFORMATION
  Report Type: 
  Country: CA (occurrence: CA)
  Receive Date: 20100201
  Receipt Date: 20120925
  Transmission Date: 20130627
  Serious: Yes (Life-Threatening, Hospitalization, Other)
  Sender: FDA-Public Use
  Company Number: PHHY2010CA03058

PATIENT
  Age: 44 Year
  Sex: Male

DRUGS (5)
  1. CLOZARIL [Suspect]
     Indication: SCHIZOPHRENIA
     Dosage: 200 UKN, UNK
     Route: 048
     Dates: start: 20061117, end: 20120802
  2. EPIVAL [Concomitant]
  3. HALDOL [Concomitant]
     Dosage: 100 mg, UNK
  4. ELAVIL [Concomitant]
     Dosage: 2.5 mg, QHS
  5. COGENTIN [Concomitant]
     Dosage: 2 mg, QHS

REACTIONS (6)
  - Thrombocytopenia [Unknown]
  - Platelet count decreased [Recovered/Resolved]
  - Neutropenia [Unknown]
  - Hepatitis C [Unknown]
  - Anaemia [Unknown]
  - White blood cell count decreased [None]
